FAERS Safety Report 6379077-2 (Version None)
Quarter: 2009Q3

REPORT INFORMATION
  Report Type: 
  Country: None (occurrence: None)
  Receive Date: 20090928
  Receipt Date: 20090918
  Transmission Date: 20100115
  Serious: Yes (Other)
  Sender: FDA-Public Use
  Company Number: JP-BAYER-200913499BYL

PATIENT

DRUGS (1)
  1. CIPROXAN [Suspect]
     Indication: RENAL ABSCESS
     Route: 048

REACTIONS (1)
  - HYPOKALAEMIA [None]
